FAERS Safety Report 6582086-1 (Version None)
Quarter: 2010Q1

REPORT INFORMATION
  Report Type: 
  Country: None (occurrence: None)
  Receive Date: 20100216
  Receipt Date: 20100204
  Transmission Date: 20100710
  Serious: Yes (Hospitalization, Other)
  Sender: FDA-Public Use
  Company Number: GB-RANBAXY-2010RR-31028

PATIENT
  Age: 75 Year
  Sex: Female
  Weight: 46.2 kg

DRUGS (25)
  1. FENTANYL-100 [Suspect]
     Indication: PAIN
     Dosage: 12 UG, UNK
     Route: 062
     Dates: start: 20091221, end: 20100118
  2. FENTANYL-100 [Suspect]
     Dosage: UNK
     Route: 062
     Dates: start: 20091130, end: 20091220
  3. LAMOTRIGINE [Suspect]
     Dosage: 25 MG, QD
     Route: 048
     Dates: start: 20091001, end: 20091111
  4. LAMOTRIGINE [Suspect]
     Dosage: 25 MG, BID
     Route: 048
     Dates: start: 20091112, end: 20100116
  5. LAMOTRIGINE [Suspect]
     Dosage: 50 MG, BID
     Route: 048
     Dates: start: 20090929, end: 20090930
  6. NITROFURANTOIN [Suspect]
     Indication: URINARY TRACT INFECTION
     Dosage: 50 MG, BID
     Route: 048
     Dates: start: 20091214, end: 20100124
  7. ALENDRONIC ACID [Concomitant]
  8. AMLODIPINE [Concomitant]
  9. ASPIRIN [Concomitant]
  10. CIPROFLOXACIN [Concomitant]
  11. CO-CODAMOL [Concomitant]
  12. FLUCONAZOLE [Concomitant]
  13. FOLIC ACID [Concomitant]
  14. FORTISIP [Concomitant]
  15. HALOPERIDOL [Concomitant]
  16. HYDROXOCOBALAMIN [Concomitant]
     Route: 030
  17. LACTULOSE [Concomitant]
  18. LORAZEPAM [Concomitant]
  19. MICONAZOLE [Concomitant]
     Route: 061
  20. PROCYCLIDINE HYDROCHLORIDE [Concomitant]
     Route: 048
  21. RISPERIDONE [Concomitant]
  22. SENNA [Concomitant]
  23. SIMVASTATIN [Concomitant]
  24. TRIMETHOPRIM [Concomitant]
  25. ZOPICLONE [Concomitant]

REACTIONS (3)
  - OEDEMA [None]
  - RASH [None]
  - SWELLING FACE [None]
